FAERS Safety Report 19961642 (Version 1)
Quarter: 2021Q4

REPORT INFORMATION
  Report Type: Spontaneous
  Country: CN (occurrence: CN)
  Receive Date: 20211018
  Receipt Date: 20211018
  Transmission Date: 20220303
  Serious: Yes (Other)
  Sender: FDA-Public Use
  Company Number: CN-BAXTER-2021BAX029309

PATIENT
  Age: 36 Year
  Sex: Female
  Weight: 44.6 kg

DRUGS (7)
  1. CYCLOPHOSPHAMIDE [Suspect]
     Active Substance: CYCLOPHOSPHAMIDE
     Indication: Breast cancer
     Dosage: FIRST CYCLE OF ADJUVANT CHEMOTHERAPY
     Route: 065
     Dates: start: 20190611
  2. CYCLOPHOSPHAMIDE [Suspect]
     Active Substance: CYCLOPHOSPHAMIDE
     Dosage: SECOND TO FOURTH CYCLE OD ADJUVANT CHEMOTHERAPY
     Route: 041
  3. CYCLOPHOSPHAMIDE [Suspect]
     Active Substance: CYCLOPHOSPHAMIDE
     Dosage: FIFTH CYCLE OF ADJUVANT CHEMOTHERAPY, CYCLOPHOSPHAMIDE (0.7G) + SODIUM CHLORIDE (100ML)
     Route: 041
     Dates: start: 20190904, end: 20190904
  4. SODIUM CHLORIDE [Suspect]
     Active Substance: SODIUM CHLORIDE
     Indication: Medication dilution
     Dosage: CYCLOPHOSPHAMIDE (0.7G) + SODIUM CHLORIDE (100ML)
     Route: 041
     Dates: start: 20190904, end: 20190904
  5. PACLITAXEL [Suspect]
     Active Substance: PACLITAXEL
     Indication: Breast cancer
     Dosage: FIFTH CYCLE OF ADJUVANT CHEMOTHERAPY, PACLITAXEL (LIPUSU) 210MG + GLUCOSE 500ML
     Route: 041
     Dates: start: 20190904, end: 20190904
  6. DEXTROSE [Suspect]
     Active Substance: DEXTROSE
     Indication: Medication dilution
     Dosage: PACLITAXEL (LIPUSU) 210MG + GLUCOSE 500ML
     Route: 041
     Dates: start: 20190904, end: 20190904
  7. DOCETAXEL [Concomitant]
     Active Substance: DOCETAXEL
     Indication: Breast cancer
     Route: 065
     Dates: start: 20190611

REACTIONS (3)
  - Myelosuppression [Recovering/Resolving]
  - Chromaturia [Recovering/Resolving]
  - Vomiting [Recovering/Resolving]

NARRATIVE: CASE EVENT DATE: 20190904
